FAERS Safety Report 20124512 (Version 1)
Quarter: 2021Q4

REPORT INFORMATION
  Report Type: Spontaneous
  Country: US (occurrence: US)
  Receive Date: 20211129
  Receipt Date: 20211129
  Transmission Date: 20220303
  Serious: No
  Sender: FDA-Public Use
  Company Number: US-TEVA-2021-US-1980609

PATIENT
  Age: 46 Year
  Sex: Female
  Weight: 51.26 kg

DRUGS (6)
  1. ARMODAFINIL [Suspect]
     Active Substance: ARMODAFINIL
     Indication: Narcolepsy
     Dosage: 500 MILLIGRAM DAILY; 250 MG - 2 PILLS A DAY
     Route: 065
     Dates: start: 202111
  2. NUVIGIL [Suspect]
     Active Substance: ARMODAFINIL
     Indication: Narcolepsy
     Dosage: 500 MILLIGRAM DAILY; FOR 15 YEARS, 250 MG - 2 PILLS A DAY
     Route: 065
  3. ARMOUR THYROID [Concomitant]
     Active Substance: THYROID, PORCINE
  4. DEXTROAMPHETAMINE [Concomitant]
     Active Substance: DEXTROAMPHETAMINE
  5. TOPAMAX [Concomitant]
     Active Substance: TOPIRAMATE
  6. AMITIZA [Concomitant]
     Active Substance: LUBIPROSTONE

REACTIONS (8)
  - Swelling of eyelid [Not Recovered/Not Resolved]
  - Eyelid rash [Not Recovered/Not Resolved]
  - Erythema of eyelid [Not Recovered/Not Resolved]
  - Eyelids pruritus [Not Recovered/Not Resolved]
  - Eyelid irritation [Not Recovered/Not Resolved]
  - Skin exfoliation [Not Recovered/Not Resolved]
  - Incorrect dose administered [Unknown]
  - Product availability issue [Unknown]

NARRATIVE: CASE EVENT DATE: 20211101
